FAERS Safety Report 25976269 (Version 2)
Quarter: 2025Q4

REPORT INFORMATION
  Report Type: Spontaneous
  Country: GB (occurrence: GB)
  Receive Date: 20251029
  Receipt Date: 20251205
  Transmission Date: 20260118
  Serious: Yes (Death, Other)
  Sender: NOVA LABORATORIES LIMITED
  Company Number: GB-Nova Laboratories Limited-2187497

PATIENT
  Age: 7 Year
  Sex: Male

DRUGS (5)
  1. PURIXAN [Suspect]
     Active Substance: MERCAPTOPURINE
     Indication: Product used for unknown indication
  2. METHOTREXATE [Concomitant]
     Active Substance: METHOTREXATE
     Dates: start: 20250820
  3. GRANULOCYTE COLONY-STIMULATING FACTOR NOS [Concomitant]
     Active Substance: GRANULOCYTE COLONY-STIMULATING FACTOR NOS
     Dates: start: 20250902
  4. MERCAPTOPURINE [Suspect]
     Active Substance: MERCAPTOPURINE
     Dates: start: 20250903, end: 20250903
  5. MERCAPTOPURINE [Suspect]
     Active Substance: MERCAPTOPURINE

REACTIONS (8)
  - Mucosal inflammation [Fatal]
  - Product prescribing error [Unknown]
  - Mucosal inflammation [Unknown]
  - Cardiac arrest [Fatal]
  - Drug monitoring procedure not performed [Unknown]
  - Febrile neutropenia [Not Recovered/Not Resolved]
  - Pseudomonas infection [Fatal]
  - Septic shock [Fatal]
